FAERS Safety Report 21021693 (Version 1)
Quarter: 2022Q2

REPORT INFORMATION
  Report Type: Spontaneous
  Country: SE (occurrence: SE)
  Receive Date: 20220629
  Receipt Date: 20220629
  Transmission Date: 20220721
  Serious: Yes (Other)
  Sender: FDA-Public Use
  Company Number: SE-ASTELLAS-2022US023277

PATIENT
  Age: 4 Year
  Sex: Female

DRUGS (3)
  1. TACROLIMUS [Suspect]
     Active Substance: TACROLIMUS
     Indication: Liver transplant
     Dosage: UNK, UNKNOWN FREQ.
     Route: 065
  2. EVEROLIMUS [Concomitant]
     Active Substance: EVEROLIMUS
     Indication: Liver transplant
     Dosage: UNK UNK, UNKNOWN FREQ. (ON POST-OPERATIVE DAY 37)
     Route: 065
  3. TRAMETIN [Concomitant]
     Indication: Angiosarcoma metastatic
     Dosage: 0.03 MG/KG, ONCE DAILY
     Route: 065

REACTIONS (4)
  - Lymphadenopathy [Recovering/Resolving]
  - Post transplant lymphoproliferative disorder [Recovering/Resolving]
  - Epstein-Barr viraemia [Recovering/Resolving]
  - Blood lactate dehydrogenase increased [Recovering/Resolving]
